FAERS Safety Report 6096205-7 (Version None)
Quarter: 2009Q1

REPORT INFORMATION
  Report Type: 
  Country: None (occurrence: None)
  Receive Date: 20090227
  Receipt Date: 20081002
  Transmission Date: 20090719
  Serious: No
  Sender: FDA-Public Use
  Company Number: A0750274A

PATIENT
  Age: 17 Year

DRUGS (2)
  1. LAMICTAL [Suspect]
     Dosage: 100MG TWICE PER DAY
     Route: 048
     Dates: start: 20080101
  2. LAMICTAL [Concomitant]
     Route: 048

REACTIONS (1)
  - GINGIVAL BLEEDING [None]
